FAERS Safety Report 25815189 (Version 1)
Quarter: 2025Q3

REPORT INFORMATION
  Report Type: Spontaneous
  Country: EU (occurrence: EU)
  Receive Date: 20250918
  Receipt Date: 20250918
  Transmission Date: 20251021
  Serious: Yes (Hospitalization, Other)
  Sender: CELLTRION
  Company Number: EU-PFIZER INC-PV202500094919

PATIENT

DRUGS (4)
  1. ADALIMUMAB [Suspect]
     Active Substance: ADALIMUMAB
     Indication: Colitis ulcerative
     Route: 058
     Dates: start: 202110, end: 202203
  2. ADALIMUMAB [Suspect]
     Active Substance: ADALIMUMAB
  3. VEDOLIZUMAB [Concomitant]
     Active Substance: VEDOLIZUMAB
     Indication: Colitis ulcerative
     Dates: start: 202211, end: 202306
  4. FILGOTINIB [Concomitant]
     Active Substance: FILGOTINIB
     Indication: Colitis ulcerative
     Dates: start: 202306, end: 202307

REACTIONS (2)
  - Thrombocytopenia [Unknown]
  - Vasculitis [Recovering/Resolving]
